FAERS Safety Report 8245129-5 (Version None)
Quarter: 2012Q1

REPORT INFORMATION
  Report Type: 
  Country: None (occurrence: None)
  Receive Date: 20120329
  Receipt Date: 20120328
  Transmission Date: 20120608
  Serious: Yes (Other)
  Sender: FDA-Public Use
  Company Number: DE-GLAXOSMITHKLINE-D0075057A

PATIENT
  Age: 21 Year
  Sex: Female

DRUGS (1)
  1. POTIGA [Suspect]
     Indication: EPILEPSY
     Route: 048
     Dates: start: 20110901

REACTIONS (2)
  - APHASIA [None]
  - SPEECH DISORDER [None]
